FAERS Safety Report 5278466-7 (Version None)
Quarter: 2007Q1

REPORT INFORMATION
  Report Type: 
  Country: None (occurrence: None)
  Receive Date: 20070322
  Receipt Date: 20070313
  Transmission Date: 20070707
  Serious: Yes (Other)
  Sender: FDA-Public Use
  Company Number: 231616K07USA

PATIENT
  Age: 48 Year
  Sex: Female

DRUGS (13)
  1. REBIF [Suspect]
     Indication: MULTIPLE SCLEROSIS
     Dosage: 44 MCG, 3 IN 1 WEEKS, SUBCUTANEOUS
     Route: 058
     Dates: start: 20061228, end: 20070201
  2. TOPAMAX [Concomitant]
  3. CONCERTA [Concomitant]
  4. PROVIGIL [Concomitant]
  5. DITROPAN XL (OXYBUTYNIN /00538901/) [Concomitant]
  6. LABETALOL HCL [Concomitant]
  7. ALLOPURINOL [Concomitant]
  8. FOSAMAX [Concomitant]
  9. LEXAPRO [Concomitant]
  10. WELLBUTRIN [Concomitant]
  11. ARIMIDEX [Concomitant]
  12. ASCORBIC ACID [Concomitant]
  13. VITAMIN D (ERGOCALICFEROL) [Concomitant]

REACTIONS (1)
  - MALIGNANT MELANOMA [None]
